FAERS Safety Report 24069841 (Version 1)
Quarter: 2024Q3

REPORT INFORMATION
  Report Type: Report from Study
  Country: ZA (occurrence: ZA)
  Receive Date: 20240710
  Receipt Date: 20240710
  Transmission Date: 20241016
  Serious: No
  Sender: ROCHE
  Company Number: ZA-ROCHE-3574208

PATIENT
  Sex: Male

DRUGS (1)
  1. VABYSMO [Suspect]
     Active Substance: FARICIMAB\FARICIMAB-SVOA
     Indication: Macular degeneration
     Dosage: TREATMENT DATES:?28/MAR/2024?23/APR/2024?23 MAY 2024?20/JUN/2024
     Route: 065

REACTIONS (1)
  - Corneal disorder [Unknown]
